FAERS Safety Report 6287491-9 (Version None)
Quarter: 2009Q3

REPORT INFORMATION
  Report Type: 
  Country: None (occurrence: None)
  Receive Date: 20090727
  Receipt Date: 20090709
  Transmission Date: 20100115
  Serious: Yes (Death)
  Sender: FDA-Public Use
  Company Number: APP200900368

PATIENT
  Age: 70 Year
  Sex: Female
  Weight: 96 kg

DRUGS (14)
  1. PROTAMINE SULFATE [Suspect]
     Indication: HEPARIN NEUTRALISATION THERAPY
     Dosage: 30 MG, INTRAVENOUS
     Route: 042
     Dates: start: 20090629, end: 20090629
  2. ANCEF [Concomitant]
  3. SYNTHROID [Concomitant]
  4. MONOPRIL [Concomitant]
  5. NORVASC [Concomitant]
  6. ASPIRIN [Concomitant]
  7. PLAVIX [Concomitant]
  8. PAPAVERINE (PAPAVERINE) [Concomitant]
  9. PROPOFOL [Concomitant]
  10. ROCURONIUM BROMIDE [Concomitant]
  11. THROMBIN LOCAL SOLUTION [Concomitant]
  12. SURGICEL (OXIDISED CELLULOSE) [Concomitant]
  13. ETOMIDATE [Concomitant]
  14. INSULIN (INSULIN) [Concomitant]

REACTIONS (1)
  - HAEMORRHAGE [None]
